FAERS Safety Report 4903124-5 (Version None)
Quarter: 2006Q1

REPORT INFORMATION
  Report Type: 
  Country: None (occurrence: None)
  Receive Date: 20060207
  Receipt Date: 20060131
  Transmission Date: 20060701
  Serious: Yes (Hospitalization)
  Sender: FDA-Public Use
  Company Number: US-ROCHE-434484

PATIENT
  Age: 29 Year
  Sex: Female

DRUGS (2)
  1. ROCEPHIN [Suspect]
     Indication: LYME DISEASE
     Dosage: LONG TERM TREATMENT.
     Route: 042
  2. OXYCONTIN [Concomitant]
     Indication: PAIN
     Route: 048

REACTIONS (1)
  - CHOLELITHIASIS [None]
